FAERS Safety Report 9678864 (Version 2)
Quarter: 2013Q4

REPORT INFORMATION
  Report Type: Spontaneous
  Country: CH (occurrence: CH)
  Receive Date: 20131108
  Receipt Date: 20131108
  Transmission Date: 20140711
  Serious: Yes (Death)
  Sender: FDA-Public Use
  Company Number: CH-CUBIST PHARMACEUTICALS, INC.-2012S1000104

PATIENT
  Age: 66 Year
  Sex: 0
  Weight: 112 kg

DRUGS (2)
  1. CUBICIN [Suspect]
     Indication: ENTEROCOCCAL INFECTION
     Dosage: 7 MG/KG, QD
     Route: 065
  2. CUBICIN [Suspect]
     Dosage: 850 MG, QD
     Route: 065

REACTIONS (1)
  - Death [Fatal]
